FAERS Safety Report 19460017 (Version 4)
Quarter: 2022Q2

REPORT INFORMATION
  Report Type: Spontaneous
  Country: GB (occurrence: GB)
  Receive Date: 20210625
  Receipt Date: 20220615
  Transmission Date: 20220721
  Serious: Yes (Death, Other)
  Sender: FDA-Public Use
  Company Number: GB-ROCHE-2808887

PATIENT
  Age: 50 Year
  Sex: Female

DRUGS (30)
  1. LETROZOLE [Suspect]
     Active Substance: LETROZOLE
     Indication: Breast cancer metastatic
     Dosage: 2.5 MICROGRAM, 1 DOSE DAILY
     Route: 048
     Dates: start: 20190709
  2. DOCETAXEL [Suspect]
     Active Substance: DOCETAXEL
     Indication: Breast cancer metastatic
     Dosage: 120 MILLIGRAM, 1 DOSE/3 WEEKS
     Route: 042
     Dates: start: 20160314, end: 20160810
  3. PERTUZUMAB [Suspect]
     Active Substance: PERTUZUMAB
     Indication: Breast cancer metastatic
     Dosage: 420 MILLIGRAM, 1 DOSE/3 WEEKS, MAINTENANCE DOSE
     Route: 042
     Dates: start: 20160516
  4. PERTUZUMAB [Suspect]
     Active Substance: PERTUZUMAB
     Dosage: 840 MILLIGRAM, 1 DOSE/3 WEEKS, INITIAL LOADING DOSE
     Route: 042
     Dates: start: 20160425, end: 20160425
  5. TAMOXIFEN [Suspect]
     Active Substance: TAMOXIFEN
     Indication: Breast cancer metastatic
     Dosage: 20 MILLIGRAM, 1 DOSE DAILY
     Route: 048
     Dates: start: 20161010, end: 20190708
  6. TRASTUZUMAB [Suspect]
     Active Substance: TRASTUZUMAB
     Indication: Breast cancer metastatic
     Dosage: 600 MILLIGRAM, 1 DOSE/3 WEEKS
     Route: 058
     Dates: start: 20160425
  7. AMITRIPTYLINE [Concomitant]
     Active Substance: AMITRIPTYLINE
     Indication: Metastases to central nervous system
     Dosage: 10 MILLIGRAM, 1 DOSE DAILY
     Route: 048
     Dates: start: 20210407
  8. BUTYLSCOPOLAMINE BROMIDE [Concomitant]
     Active Substance: BUTYLSCOPOLAMINE BROMIDE
     Indication: Product used for unknown indication
     Dosage: 20 MILLIGRAM, 4 DOSES DAILY
     Route: 048
     Dates: start: 20160625
  9. CODEINE [Concomitant]
     Active Substance: CODEINE
     Indication: Phantom limb syndrome
     Dosage: 30 MILLIGRAM, 2 DOSE DAILY
     Route: 048
     Dates: start: 20160919
  10. DEXAMETHASONE [Concomitant]
     Active Substance: DEXAMETHASONE
     Indication: Metastases to central nervous system
     Dosage: 2 MILLIGRAM, 1 DOSE DAILY
     Route: 048
     Dates: start: 20191011, end: 20191125
  11. DEXAMETHASONE [Concomitant]
     Active Substance: DEXAMETHASONE
     Indication: Headache
     Dosage: 4 MILLIGRAM, 2 DOSE DAILY
     Route: 048
     Dates: start: 201909, end: 20191010
  12. DEXAMETHASONE [Concomitant]
     Active Substance: DEXAMETHASONE
     Dosage: 4 MILLIGRAM, 1 DOSE DAILY
     Route: 048
     Dates: start: 20200611
  13. DEXAMETHASONE [Concomitant]
     Active Substance: DEXAMETHASONE
     Dosage: 1.5 MILLIGRAM, 1 DOSE DAILY
     Route: 048
     Dates: start: 20191126, end: 20191203
  14. DEXAMETHASONE [Concomitant]
     Active Substance: DEXAMETHASONE
     Dosage: 0.5 MILLIGRAM, QOD
     Route: 048
     Dates: start: 20191224, end: 202002
  15. DEXAMETHASONE [Concomitant]
     Active Substance: DEXAMETHASONE
     Dosage: 4 MILLIGRAM, 1 DOSE DAILY
     Route: 048
     Dates: start: 20210216
  16. DEXAMETHASONE [Concomitant]
     Active Substance: DEXAMETHASONE
     Dosage: 1 MILLIGRAM, QOD
     Route: 048
     Dates: start: 20191204, end: 20191223
  17. DOCUSATE [Concomitant]
     Active Substance: DOCUSATE
     Indication: Constipation
     Dosage: 100 MILLIGRAM
     Route: 048
     Dates: start: 20210226
  18. UNSPECIFIED INGREDIENT [Concomitant]
     Active Substance: UNSPECIFIED INGREDIENT
     Indication: Product used for unknown indication
     Dosage: UNK, AS NECESSARY
     Route: 061
     Dates: start: 20210218
  19. IBUPROFEN [Concomitant]
     Active Substance: IBUPROFEN
     Indication: Musculoskeletal pain
     Dosage: 200 MILLIGRAM, PRN
     Route: 048
     Dates: start: 20160612
  20. POLYETHYLENE GLYCOL 3350\POTASSIUM CHLORIDE\SODIUM BICARBONATE\SODIUM [Concomitant]
     Active Substance: POLYETHYLENE GLYCOL 3350\POTASSIUM CHLORIDE\SODIUM BICARBONATE\SODIUM CHLORIDE
     Indication: Product used for unknown indication
     Dosage: UNK, DAILY
     Route: 048
     Dates: start: 20160627
  21. OMEPRAZOLE [Concomitant]
     Active Substance: OMEPRAZOLE
     Indication: Metastases to central nervous system
     Dosage: 20 MILLIGRAM, 2 DOSE DAILY
     Route: 048
     Dates: start: 201909
  22. MORPHINE SULFATE [Concomitant]
     Active Substance: MORPHINE SULFATE
     Dosage: UNK, PRN
     Route: 048
     Dates: start: 20210311
  23. MORPHINE SULFATE [Concomitant]
     Active Substance: MORPHINE SULFATE
     Route: 048
     Dates: start: 20210311
  24. MORPHINE SULFATE [Concomitant]
     Active Substance: MORPHINE SULFATE
     Indication: Metastases to central nervous system
     Route: 048
     Dates: start: 20210311
  25. ACETAMINOPHEN [Concomitant]
     Active Substance: ACETAMINOPHEN
     Indication: Musculoskeletal pain
     Dosage: 1 GRAM, PRN
     Route: 048
     Dates: start: 20160612
  26. BENZYDAMINE HYDROCHLORIDE [Concomitant]
     Active Substance: BENZYDAMINE HYDROCHLORIDE
     Indication: Product used for unknown indication
  27. CEPHRADINE [Concomitant]
     Active Substance: CEPHRADINE
     Indication: Product used for unknown indication
  28. FLUCLOXACILLIN [Concomitant]
     Active Substance: FLUCLOXACILLIN
     Indication: Product used for unknown indication
  29. NITROFURANTOIN [Concomitant]
     Active Substance: NITROFURANTOIN
     Indication: Product used for unknown indication
  30. PERMETHRIN [Concomitant]
     Active Substance: PERMETHRIN
     Indication: Product used for unknown indication

REACTIONS (13)
  - Cellulitis [Fatal]
  - Urinary tract infection [Fatal]
  - Skin infection [Fatal]
  - Vision blurred [Fatal]
  - Headache [Fatal]
  - Acarodermatitis [Fatal]
  - Constipation [Fatal]
  - Incorrect route of product administration [Fatal]
  - Death [Fatal]
  - Pulmonary mass [Fatal]
  - Lymphoedema [Fatal]
  - Vision blurred [Fatal]
  - Acarodermatitis [Fatal]

NARRATIVE: CASE EVENT DATE: 20161001
